FAERS Safety Report 5865092-1 (Version None)
Quarter: 2008Q3

REPORT INFORMATION
  Report Type: 
  Country: None (occurrence: None)
  Receive Date: 20080829
  Receipt Date: 20080822
  Transmission Date: 20090109
  Serious: Yes (Death, Hospitalization)
  Sender: FDA-Public Use
  Company Number: A0740342A

PATIENT
  Age: 72 Year
  Sex: Female
  Weight: 54 kg

DRUGS (2)
  1. TOPOTECAN [Suspect]
     Dosage: 1.75MG PER DAY
     Route: 048
     Dates: start: 20080721, end: 20080725
  2. RADIATION [Suspect]
     Dosage: 3GY PER DAY
     Route: 061
     Dates: start: 20080721, end: 20080725

REACTIONS (10)
  - ANAEMIA [None]
  - BRONCHIAL OBSTRUCTION [None]
  - BRONCHIAL SECRETION RETENTION [None]
  - DYSPNOEA [None]
  - FEBRILE NEUTROPENIA [None]
  - NEUTROPENIA [None]
  - PULMONARY THROMBOSIS [None]
  - RESPIRATORY TRACT HAEMORRHAGE [None]
  - RESPIRATORY TRACT INFECTION [None]
  - THROMBOCYTOPENIA [None]
